FAERS Safety Report 16124981 (Version 1)
Quarter: 2019Q1

REPORT INFORMATION
  Report Type: Spontaneous
  Country: ES (occurrence: ES)
  Receive Date: 20190327
  Receipt Date: 20190327
  Transmission Date: 20190418
  Serious: Yes (Hospitalization, Other)
  Sender: FDA-Public Use
  Company Number: ES-BAUSCH-BL-2019-008980

PATIENT
  Age: 78 Year
  Sex: Female

DRUGS (6)
  1. EXFORGE HCT [Interacting]
     Active Substance: AMLODIPINE BESYLATE\HYDROCHLOROTHIAZIDE\VALSARTAN
     Indication: HYPERTENSION
     Dosage: 1 EVERY 24 HOURS; 10 MG / 160 MG / 25 MG FILM-COATED TABLETS, 28 TABLETS
     Route: 048
     Dates: start: 201011
  2. TOVIAZ [Interacting]
     Active Substance: FESOTERODINE FUMARATE
     Indication: HYPERTONIC BLADDER
     Dosage: 1 EVERY 24 HOURS; 8MG PROLONGED RELEASE TABLETS, 28 TABLETS
     Route: 048
     Dates: start: 201301, end: 2018
  3. LORAZEPAM. [Suspect]
     Active Substance: LORAZEPAM
     Indication: ADJUSTMENT DISORDER WITH DEPRESSED MOOD
     Dosage: 0-0-0-1; 1 MG 50 TABLETS
     Route: 048
     Dates: start: 201201, end: 2018
  4. DUROGESIC MATRIX [Interacting]
     Active Substance: FENTANYL
     Indication: BACK PAIN
     Dosage: 1 EVERY 72 HOURS. 50 MICROG/H TRANSDERMIC PATCHES, 5 PATCHES, IN FEB/2017, MAR/2017 WAS GIVEN 25MCG/
     Route: 062
     Dates: start: 201712
  5. EFFERALGAN [Concomitant]
     Active Substance: ACETAMINOPHEN
     Indication: PRODUCT USED FOR UNKNOWN INDICATION
     Dosage: 1-1-1-0. UP TO 3 A DAY, FOR PAIN. 1 EVERY 8 HOURS; 1 G EFFERVESCENT TABLETS, 40 TABLETS
     Route: 048
  6. FLUOXETINE [Interacting]
     Active Substance: FLUOXETINE HYDROCHLORIDE
     Indication: ADJUSTMENT DISORDER WITH DEPRESSED MOOD
     Dosage: 1-0-0-0; 20 MG 28 CAPSULES
     Route: 048
     Dates: start: 201201, end: 2018

REACTIONS (1)
  - Parotitis [Recovered/Resolved]

NARRATIVE: CASE EVENT DATE: 201808
